FAERS Safety Report 19957424 (Version 3)
Quarter: 2021Q4

REPORT INFORMATION
  Report Type: Spontaneous
  Country: US (occurrence: US)
  Receive Date: 20211015
  Receipt Date: 20211225
  Transmission Date: 20220303
  Serious: No
  Sender: FDA-Public Use
  Company Number: US-GLAXOSMITHKLINE-USCH2021068629

PATIENT
  Age: 57 Year
  Sex: Female

DRUGS (1)
  1. ADVIL LIQUI-GELS [Suspect]
     Active Substance: IBUPROFEN
     Indication: Headache
     Dosage: UNK
     Dates: start: 20210924, end: 20210924

REACTIONS (4)
  - Oral discomfort [Recovered/Resolved]
  - Glossodynia [Unknown]
  - Dyspepsia [Unknown]
  - Product complaint [Unknown]

NARRATIVE: CASE EVENT DATE: 20210924
